FAERS Safety Report 5426904-9 (Version None)
Quarter: 2007Q3

REPORT INFORMATION
  Report Type: 
  Country: None (occurrence: None)
  Receive Date: 20070731
  Receipt Date: 20070502
  Transmission Date: 20080115
  Serious: No
  Sender: FDA-Public Use
  Company Number: US200705000934

PATIENT
  Age: 59 Year
  Sex: Female

DRUGS (4)
  1. BYETTA [Suspect]
     Indication: TYPE 2 DIABETES MELLITUS
     Dosage: 5 UG, 2/D, SUBCUTANEOUS
     Route: 058
     Dates: start: 20070502
  2. EXENATIDE PEN, DISPOSABLE [Concomitant]
  3. HUMULIN N [Concomitant]
  4. HUMALOG [Concomitant]

REACTIONS (2)
  - DYSPEPSIA [None]
  - GASTROINTESTINAL SOUNDS ABNORMAL [None]
